FAERS Safety Report 7345369-3 (Version None)
Quarter: 2011Q1

REPORT INFORMATION
  Report Type: 
  Country: None (occurrence: None)
  Receive Date: 20110310
  Receipt Date: 20110225
  Transmission Date: 20110831
  Serious: Yes (Hospitalization, Other)
  Sender: FDA-Public Use
  Company Number: PHHY2010KR42728

PATIENT
  Sex: Female

DRUGS (1)
  1. ZOMETA [Suspect]
     Indication: BREAST CANCER
     Dosage: UNK
     Route: 042
     Dates: start: 20071101

REACTIONS (5)
  - NEOPLASM MALIGNANT [None]
  - MULTIPLE FRACTURES [None]
  - PAIN IN EXTREMITY [None]
  - METASTASES TO BONE [None]
  - JOINT DISLOCATION [None]
